FAERS Safety Report 25059678 (Version 1)
Quarter: 2025Q1

REPORT INFORMATION
  Report Type: Spontaneous
  Country: US (occurrence: None)
  Receive Date: 20250310
  Receipt Date: 20250310
  Transmission Date: 20250408
  Serious: Yes (Other)
  Sender: INCYTE
  Company Number: US-INCYTE CORPORATION-2025IN002442

PATIENT
  Age: 76 Year

DRUGS (1)
  1. JAKAFI [Suspect]
     Active Substance: RUXOLITINIB
     Indication: Myelofibrosis
     Dosage: 20 MILLIGRAM, BID

REACTIONS (5)
  - Blood iron decreased [Unknown]
  - Influenza [Recovering/Resolving]
  - Bronchitis [Recovering/Resolving]
  - Asthenia [Recovered/Resolved]
  - Dehydration [Unknown]
